FAERS Safety Report 22613105 (Version 1)
Quarter: 2023Q2

REPORT INFORMATION
  Report Type: Spontaneous
  Country: US (occurrence: US)
  Receive Date: 20230618
  Receipt Date: 20230618
  Transmission Date: 20230721
  Serious: No
  Sender: FDA-Public Use
  Company Number: US-009507513-2306USA003579

PATIENT
  Age: 77 Year
  Sex: Female

DRUGS (1)
  1. TEMODAR [Suspect]
     Active Substance: TEMOZOLOMIDE
     Indication: Glioblastoma
     Route: 048
     Dates: start: 20230101, end: 20230515

REACTIONS (1)
  - Hospice care [Unknown]

NARRATIVE: CASE EVENT DATE: 20230605
